FAERS Safety Report 8905487 (Version 2)
Quarter: 2013Q4

REPORT INFORMATION
  Report Type: Spontaneous
  Country: GB (occurrence: GB)
  Receive Date: 20121113
  Receipt Date: 20131010
  Transmission Date: 20140711
  Serious: Yes (Other)
  Sender: FDA-Public Use
  Company Number: GB-SHIRE-ALL1-2012-05502

PATIENT
  Age: 41 Year
  Sex: Male

DRUGS (2)
  1. MEZAVANT XL [Suspect]
     Indication: COLITIS ULCERATIVE
     Dosage: 1200 MG, 4X/DAY:QID
     Route: 048
     Dates: start: 20090904
  2. MEZAVANT XL [Suspect]
     Dosage: 1200 MG, 4X/DAY:QID
     Route: 048
     Dates: start: 2012, end: 20120927

REACTIONS (2)
  - Sexual dysfunction [Recovered/Resolved]
  - Erectile dysfunction [Recovered/Resolved]
